FAERS Safety Report 11135396 (Version 1)
Quarter: 2015Q2

REPORT INFORMATION
  Report Type: Spontaneous
  Country: IT (occurrence: IT)
  Receive Date: 20150525
  Receipt Date: 20150525
  Transmission Date: 20150821
  Serious: Yes (Hospitalization)
  Sender: FDA-Public Use
  Company Number: IT-BRISTOL-MYERS SQUIBB COMPANY-BMS-2015-031232

PATIENT
  Age: 82 Year
  Sex: Male

DRUGS (4)
  1. CARDICOR [Concomitant]
     Active Substance: BISOPROLOL
     Indication: ATRIAL FIBRILLATION
     Dosage: 2.5 MG, QD
     Route: 048
     Dates: start: 20110217
  2. COUMADIN [Suspect]
     Active Substance: WARFARIN SODIUM
     Indication: ATRIAL FIBRILLATION
     Dosage: 1 UNIT, QD
     Route: 048
     Dates: start: 20110429
  3. SINVACOR [Concomitant]
     Active Substance: SIMVASTATIN
     Indication: HYPERCHOLESTEROLAEMIA
     Dosage: 20 MG, QD
     Route: 048
     Dates: start: 20110914
  4. ONCO CARBIDE [Suspect]
     Active Substance: HYDROXYUREA
     Indication: POLYCYTHAEMIA
     Dosage: 500 MG, UNK
     Route: 048
     Dates: start: 20131202

REACTIONS (6)
  - Chronic obstructive pulmonary disease [Unknown]
  - Blood iron decreased [Unknown]
  - Overdose [Unknown]
  - Haemoglobin decreased [Unknown]
  - International normalised ratio increased [Unknown]
  - Anaemia macrocytic [Unknown]

NARRATIVE: CASE EVENT DATE: 20150305
